FAERS Safety Report 9479698 (Version 1)
Quarter: 2013Q3

REPORT INFORMATION
  Report Type: Spontaneous
  Country: US (occurrence: US)
  Receive Date: 20130828
  Receipt Date: 20130828
  Transmission Date: 20140515
  Serious: Yes (Hospitalization, Other)
  Sender: FDA-Public Use
  Company Number: US-AMGEN-KDL036774

PATIENT
  Age: 74 Year
  Sex: Female

DRUGS (3)
  1. ENBREL [Suspect]
     Indication: RHEUMATOID ARTHRITIS
     Dosage: 25 MG, 2 TIMES/WK
     Route: 058
     Dates: start: 20021201
  2. METHOTREXATE [Concomitant]
     Dosage: 5 MG, QWK
     Dates: start: 20011001
  3. PREDNISONE [Concomitant]
     Dosage: 8 MG, UNK
     Dates: start: 20010401

REACTIONS (2)
  - Gallbladder operation [Unknown]
  - Pulmonary fibrosis [Unknown]
